FAERS Safety Report 6555097-X (Version None)
Quarter: 2010Q1

REPORT INFORMATION
  Report Type: 
  Country: None (occurrence: None)
  Receive Date: 20100126
  Receipt Date: 20100126
  Transmission Date: 20100710
  Serious: Yes (Other)
  Sender: FDA-Public Use
  Company Number: None

PATIENT
  Age: 57 Year
  Sex: Female
  Weight: 62.5964 kg

DRUGS (1)
  1. TYLENOL SIMPLY SLEEP 25 MG TYLENOL [Suspect]
     Indication: INSOMNIA
     Dosage: 2 CAPLETS EVERY NIGHT PO
     Route: 048
     Dates: start: 20091001, end: 20091123

REACTIONS (4)
  - ABDOMINAL PAIN [None]
  - DIARRHOEA [None]
  - NAUSEA [None]
  - PRODUCT QUALITY ISSUE [None]
